FAERS Safety Report 10330329 (Version 6)
Quarter: 2018Q2

REPORT INFORMATION
  Report Type: Report from Study
  Country: CA (occurrence: CA)
  Receive Date: 20140722
  Receipt Date: 20180408
  Transmission Date: 20180711
  Serious: Yes (Other)
  Sender: FDA-Public Use
  Company Number: CA-ROCHE-1213238

PATIENT
  Age: 68 Year
  Sex: Female
  Weight: 68 kg

DRUGS (7)
  1. PREDNISONE. [Concomitant]
     Active Substance: PREDNISONE
     Route: 065
  2. OMEPRAZOLE. [Concomitant]
     Active Substance: OMEPRAZOLE
  3. FOSAVANCE [Concomitant]
     Active Substance: ALENDRONATE SODIUM\CHOLECALCIFEROL
  4. BISOPROLOL [Concomitant]
     Active Substance: BISOPROLOL
  5. ACTEMRA [Suspect]
     Active Substance: TOCILIZUMAB
     Indication: RHEUMATOID ARTHRITIS
     Route: 042
     Dates: start: 20130114
  6. ACTEMRA [Suspect]
     Active Substance: TOCILIZUMAB
     Route: 042
     Dates: start: 20130909, end: 20140703
  7. HYDROCHLOROTHIAZIDE. [Concomitant]
     Active Substance: HYDROCHLOROTHIAZIDE

REACTIONS (9)
  - Adnexa uteri mass [Recovered/Resolved]
  - Limb injury [Unknown]
  - Drug effect decreased [Unknown]
  - Limb injury [Not Recovered/Not Resolved]
  - Hypertension [Unknown]
  - Limb injury [Recovered/Resolved]
  - Aortic valve disease [Unknown]
  - Lung carcinoma cell type unspecified stage II [Unknown]
  - Cellulitis [Unknown]

NARRATIVE: CASE EVENT DATE: 20130330
